FAERS Safety Report 13986245 (Version 2)
Quarter: 2017Q3

REPORT INFORMATION
  Report Type: Spontaneous
  Country: US (occurrence: US)
  Receive Date: 20170919
  Receipt Date: 20170929
  Transmission Date: 20171128
  Serious: Yes (Death, Hospitalization, Other)
  Sender: FDA-Public Use
  Company Number: US-AUROBINDO-AUR-APL-2017-40286

PATIENT
  Sex: Female

DRUGS (1)
  1. AMIODARONE HYDROCHLORIDE 200 MG TABLET [Suspect]
     Active Substance: AMIODARONE HYDROCHLORIDE
     Indication: ATRIAL FIBRILLATION
     Dosage: 200 MG, UNK
     Route: 065

REACTIONS (11)
  - Wheezing [Fatal]
  - Fatigue [Fatal]
  - Weight decreased [Unknown]
  - Acute kidney injury [Fatal]
  - Dyspnoea [Fatal]
  - Cough [Fatal]
  - Respiratory failure [Fatal]
  - Oedema [Unknown]
  - Renal failure [Unknown]
  - Asthenia [Fatal]
  - Gait disturbance [Unknown]
